FAERS Safety Report 9098314 (Version 1)
Quarter: 2013Q1

REPORT INFORMATION
  Report Type: Report from Study
  Country: ES (occurrence: ES)
  Receive Date: 20130213
  Receipt Date: 20130213
  Transmission Date: 20140127
  Serious: Yes (Death)
  Sender: FDA-Public Use
  Company Number: ES-ROCHE-1189429

PATIENT
  Age: 77 Year
  Sex: Male

DRUGS (1)
  1. BEVACIZUMAB [Suspect]
     Indication: LUNG NEOPLASM MALIGNANT
     Route: 065
     Dates: start: 20121210, end: 20130102

REACTIONS (1)
  - Sudden death [Fatal]
